FAERS Safety Report 24362979 (Version 1)
Quarter: 2024Q3

REPORT INFORMATION
  Report Type: Spontaneous
  Country: SE (occurrence: SE)
  Receive Date: 20240925
  Receipt Date: 20240925
  Transmission Date: 20241017
  Serious: Yes (Disabling, Other)
  Sender: GLAXOSMITHKLINE
  Company Number: None

PATIENT

DRUGS (1)
  1. SUMATRIPTAN SUCCINATE [Suspect]
     Active Substance: SUMATRIPTAN SUCCINATE
     Indication: Migraine
     Dosage: UNK, OVER AN APPROXIMATELY 10-YEAR PERIOD WITH END IN 2019 OR 2020
     Route: 058
     Dates: end: 20210101

REACTIONS (11)
  - Disability [Unknown]
  - Blood pressure systolic increased [Recovered/Resolved]
  - Injection site discomfort [Unknown]
  - Injection site pain [Unknown]
  - Stress [Unknown]
  - Blood pressure increased [Recovered/Resolved]
  - Dyspnoea [Unknown]
  - Bronchospasm [Unknown]
  - Erythema [Unknown]
  - Feeling abnormal [Unknown]
  - Therapeutic response unexpected [Unknown]
